FAERS Safety Report 13911287 (Version 1)
Quarter: 2017Q3

REPORT INFORMATION
  Report Type: Report from Study
  Country: IN (occurrence: IN)
  Receive Date: 20170828
  Receipt Date: 20170828
  Transmission Date: 20171127
  Serious: Yes (Other)
  Sender: FDA-Public Use
  Company Number: IN-ASTELLAS-2017US034160

PATIENT

DRUGS (2)
  1. ERLOTINIB [Suspect]
     Active Substance: ERLOTINIB
     Indication: SQUAMOUS CELL CARCINOMA
     Dosage: 100 MG, ONCE DAILY FROM DAY 1
     Route: 065
  2. CISPLATIN. [Suspect]
     Active Substance: CISPLATIN
     Indication: SQUAMOUS CELL CARCINOMA
     Route: 065

REACTIONS (3)
  - Dysphagia [Unknown]
  - Mucosal inflammation [Unknown]
  - Skin reaction [Unknown]
